FAERS Safety Report 5706859-X (Version None)
Quarter: 2008Q2

REPORT INFORMATION
  Report Type: 
  Country: None (occurrence: None)
  Receive Date: 20080416
  Receipt Date: 20080403
  Transmission Date: 20081010
  Serious: Yes (Other)
  Sender: FDA-Public Use
  Company Number: JP-SANOFI-SYNTHELABO-A01200701610

PATIENT
  Sex: Male
  Weight: 68 kg

DRUGS (5)
  1. LEUCOVORIN [Concomitant]
     Route: 042
     Dates: start: 20070202, end: 20070202
  2. OXALIPLATIN [Suspect]
     Indication: RECTAL CANCER
     Route: 042
     Dates: start: 20070202, end: 20070202
  3. FLUOROURACIL [Concomitant]
     Route: 040
     Dates: start: 20070112, end: 20070112
  4. FLUOROURACIL [Concomitant]
     Route: 042
     Dates: start: 20070112, end: 20070112
  5. AZELNIDIPINE [Concomitant]
     Indication: HYPERTENSION
     Route: 048

REACTIONS (4)
  - ANAPHYLACTIC REACTION [None]
  - ENTEROCOLITIS [None]
  - MYOCARDIAL ISCHAEMIA [None]
  - NEUTROPENIA [None]
